FAERS Safety Report 25035032 (Version 1)
Quarter: 2025Q1

REPORT INFORMATION
  Report Type: Spontaneous
  Country: US (occurrence: US)
  Receive Date: 20250304
  Receipt Date: 20250304
  Transmission Date: 20250408
  Serious: Yes (Hospitalization, Other)
  Sender: AMNEAL
  Company Number: US-AMNEAL PHARMACEUTICALS-2025-AMRX-00720

PATIENT
  Age: 66 Year
  Sex: Male

DRUGS (3)
  1. AMLODIPINE BESYLATE [Suspect]
     Active Substance: AMLODIPINE BESYLATE
     Indication: Hypertension
     Route: 065
  2. CEFTRIAXONE [Concomitant]
     Active Substance: CEFTRIAXONE
     Indication: Peritonitis bacterial
     Route: 033
  3. VANCOMYCIN [Concomitant]
     Active Substance: VANCOMYCIN
     Indication: Peritonitis bacterial
     Route: 033

REACTIONS (1)
  - Ascites [Recovered/Resolved]
